FAERS Safety Report 10228035 (Version 3)
Quarter: 2023Q2

REPORT INFORMATION
  Report Type: Spontaneous
  Country: FR (occurrence: FR)
  Receive Date: 20140610
  Receipt Date: 20230607
  Transmission Date: 20230721
  Serious: Yes (Hospitalization, Other)
  Sender: FDA-Public Use
  Company Number: FR-PFIZER INC-2014152251

PATIENT
  Age: 84 Year
  Sex: Female
  Weight: 65 kg

DRUGS (9)
  1. TAHOR [Suspect]
     Active Substance: ATORVASTATIN CALCIUM
     Indication: Product used for unknown indication
     Dosage: 80 MG, 1X/DAY
     Route: 048
     Dates: start: 20140417, end: 20140512
  2. ACETAMINOPHEN\CAFFEINE\OPIUM [Suspect]
     Active Substance: ACETAMINOPHEN\CAFFEINE\OPIUM
     Indication: Headache
     Dosage: 6 DOSAGE FORM, QD (6 DF, DAILY)
     Route: 048
     Dates: end: 20140512
  3. ACETAMINOPHEN [Suspect]
     Active Substance: ACETAMINOPHEN
     Indication: Headache
     Dosage: 1 GRAM, QID (1 G, 4X/DAY REGIMEN DOSE UNIT: GRAM)
     Route: 048
     Dates: end: 20140512
  4. ESOMEPRAZOLE [Concomitant]
     Active Substance: ESOMEPRAZOLE
     Indication: Product used for unknown indication
     Dosage: 40 MILLIGRAM, QD (40 MG, 1X/DAY REGIMEN DOSE UNIT: MILLIGRAM)
     Route: 048
  5. RAMIPRIL [Concomitant]
     Active Substance: RAMIPRIL
     Indication: Product used for unknown indication
     Dosage: 10 MILLIGRAM, QD (10 MG, 1X/DAY REGIMEN DOSE UNIT: MILLIGRAM)
     Route: 048
  6. TRAMADOL HYDROCHLORIDE [Concomitant]
     Active Substance: TRAMADOL HYDROCHLORIDE
     Indication: Product used for unknown indication
     Dosage: 100 MILLIGRAM, QD (100 MG, 1X/DAY REGIMEN DOSE UNIT: MILLIGRAM)
     Route: 048
  7. AMLODIPINE [Concomitant]
     Active Substance: AMLODIPINE BESYLATE
     Indication: Product used for unknown indication
     Dosage: 5 MILLIGRAM, QD (5 MG, 1X/DAY REGIMEN DOSE UNIT: MILLIGRAM)
     Route: 048
  8. BISOPROLOL [Concomitant]
     Active Substance: BISOPROLOL
     Indication: Product used for unknown indication
     Dosage: 1.25 MILLIGRAM, QD (1.25 MG, 1X/DAY REGIMEN DOSE UNIT: MILLIGRAM)
     Route: 048
  9. BORIC ACID\SODIUM BORATE [Concomitant]
     Active Substance: BORIC ACID\SODIUM BORATE
     Indication: Product used for unknown indication
     Dosage: 5 MILLILITER (5 ML, UNK)
     Route: 047

REACTIONS (8)
  - Pyrexia [Recovered/Resolved]
  - Hepatitis acute [Recovering/Resolving]
  - Eosinophilia [Not Recovered/Not Resolved]
  - Pyelonephritis acute [Unknown]
  - Tinnitus [Unknown]
  - Photophobia [Unknown]
  - Dysuria [Unknown]
  - Nausea [Unknown]

NARRATIVE: CASE EVENT DATE: 20140504
